FAERS Safety Report 21882467 (Version 2)
Quarter: 2023Q1

REPORT INFORMATION
  Report Type: Report from Study
  Country: UY (occurrence: UY)
  Receive Date: 20230119
  Receipt Date: 20230324
  Transmission Date: 20230418
  Serious: Yes (Hospitalization, Other)
  Sender: FDA-Public Use
  Company Number: UY-ABBVIE-4275425

PATIENT
  Age: 64 Year
  Sex: Male

DRUGS (1)
  1. HUMIRA [Suspect]
     Active Substance: ADALIMUMAB
     Indication: Ankylosing spondylitis
     Dosage: FORM STRENGTH: 40 MG
     Route: 058
     Dates: start: 20200505

REACTIONS (3)
  - Coma [Recovering/Resolving]
  - Road traffic accident [Not Recovered/Not Resolved]
  - Tendon disorder [Recovering/Resolving]

NARRATIVE: CASE EVENT DATE: 20230105
